FAERS Safety Report 13331032 (Version 3)
Quarter: 2017Q2

REPORT INFORMATION
  Report Type: Spontaneous
  Country: US (occurrence: US)
  Receive Date: 20170313
  Receipt Date: 20170411
  Transmission Date: 20170830
  Serious: No
  Sender: FDA-Public Use
  Company Number: US-009507513-1702USA007235

PATIENT
  Age: 39 Year
  Sex: Female

DRUGS (4)
  1. COMPAZINE [Concomitant]
     Active Substance: PROCHLORPERAZINE MALEATE
  2. SYLATRON [Suspect]
     Active Substance: PEGINTERFERON ALFA-2B
     Indication: PLASMA CELL MYELOMA
     Dosage: 240 MICROGRAM, QW
     Route: 058
     Dates: start: 20150728, end: 20170124
  3. AMITRIPTYLINE HYDROCHLORIDE. [Concomitant]
     Active Substance: AMITRIPTYLINE HYDROCHLORIDE
     Route: 048
  4. YAZ [Concomitant]
     Active Substance: DROSPIRENONE\ETHINYL ESTRADIOL

REACTIONS (1)
  - Enzyme level increased [Unknown]

NARRATIVE: CASE EVENT DATE: 20170124
